FAERS Safety Report 9290122 (Version 1)
Quarter: 2013Q2

REPORT INFORMATION
  Report Type: Spontaneous
  Country: US (occurrence: None)
  Receive Date: 20130510
  Receipt Date: 20130510
  Transmission Date: 20140414
  Serious: Yes (Hospitalization)
  Sender: FDA-Public Use
  Company Number: 2013TP000237

PATIENT
  Sex: Female

DRUGS (1)
  1. LIDODERM (5 PCT) [Suspect]
     Indication: PRODUCT USED FOR UNKNOWN INDICATION
     Dosage: ;TOP
     Route: 061
     Dates: end: 201304

REACTIONS (1)
  - Chest pain [None]
